FAERS Safety Report 5770817-X (Version None)
Quarter: 2008Q2

REPORT INFORMATION
  Report Type: 
  Country: None (occurrence: None)
  Receive Date: 20080613
  Receipt Date: 20080513
  Transmission Date: 20081010
  Serious: No
  Sender: FDA-Public Use
  Company Number: US-ABBOTT-08P-163-0451736-00

PATIENT
  Sex: Female
  Weight: 54.026 kg

DRUGS (3)
  1. HUMIRA [Suspect]
     Indication: RHEUMATOID ARTHRITIS
     Route: 058
     Dates: start: 20060101
  2. HYDROCODONE [Concomitant]
     Indication: PAIN
     Route: 048
  3. NAPROXEN [Concomitant]
     Indication: SWELLING
     Route: 048

REACTIONS (3)
  - HAEMOGLOBIN DECREASED [None]
  - RHEUMATOID ARTHRITIS [None]
  - WHITE BLOOD CELL COUNT INCREASED [None]
